FAERS Safety Report 25235811 (Version 1)
Quarter: 2025Q2

REPORT INFORMATION
  Report Type: Spontaneous
  Country: PL (occurrence: PL)
  Receive Date: 20250424
  Receipt Date: 20250424
  Transmission Date: 20250716
  Serious: Yes (Life-Threatening, Other)
  Sender: Kenvue
  Company Number: PL-URPL-1-2004-2020

PATIENT

DRUGS (1)
  1. ACETAMINOPHEN [Suspect]
     Active Substance: ACETAMINOPHEN
     Indication: Toxicity to various agents
     Route: 048
     Dates: start: 20200923

REACTIONS (2)
  - Toxicity to various agents [Recovering/Resolving]
  - Suicide attempt [Recovering/Resolving]

NARRATIVE: CASE EVENT DATE: 20200923
